FAERS Safety Report 4591577-4 (Version None)
Quarter: 2005Q1

REPORT INFORMATION
  Report Type: 
  Country: None (occurrence: None)
  Receive Date: 20050225
  Receipt Date: 20041029
  Transmission Date: 20050727
  Serious: Yes (Hospitalization, Other)
  Sender: FDA-Public Use
  Company Number: HQWYE189101NOV04

PATIENT
  Sex: Male

DRUGS (2)
  1. ENBREL [Suspect]
     Indication: ANKYLOSING SPONDYLITIS
     Dosage: UNKNOWN DOSE
     Route: 058
  2. VOLTAREN [Concomitant]
     Route: 048
     Dates: start: 20030818

REACTIONS (4)
  - DISLOCATION OF JOINT PROSTHESIS [None]
  - IMPLANT SITE INFECTION [None]
  - SEPSIS [None]
  - STAPHYLOCOCCAL INFECTION [None]
